FAERS Safety Report 13345522 (Version 1)
Quarter: 2017Q1

REPORT INFORMATION
  Report Type: Spontaneous
  Country: US (occurrence: US)
  Receive Date: 20170316
  Receipt Date: 20170316
  Transmission Date: 20170428
  Serious: No
  Sender: FDA-Public Use
  Company Number: None

PATIENT
  Age: 79 Year
  Sex: Female

DRUGS (12)
  1. REMERON [Concomitant]
     Active Substance: MIRTAZAPINE
  2. VITAMIN D [Concomitant]
     Active Substance: CHOLECALCIFEROL
  3. ARICEPT [Concomitant]
     Active Substance: DONEPEZIL HYDROCHLORIDE
  4. LAXATIVE [Concomitant]
     Active Substance: UNSPECIFIED INGREDIENT
  5. METOPROLOL. [Concomitant]
     Active Substance: METOPROLOL
  6. PROBIOTIC [Concomitant]
     Active Substance: PROBIOTICS NOS
  7. CALCITONIN SPR [Concomitant]
  8. ENTACAPONE. [Concomitant]
     Active Substance: ENTACAPONE
  9. CARBIDOPA. [Concomitant]
     Active Substance: CARBIDOPA
  10. NUPLAZID [Suspect]
     Active Substance: PIMAVANSERIN TARTRATE
     Indication: PARKINSON^S DISEASE
     Route: 048
     Dates: start: 20170126, end: 20170216
  11. MULTI-VITAMIN [Concomitant]
     Active Substance: .ALPHA.-TOCOPHEROL ACETATE, DL-\ASCORBIC ACID\CYANOCOBALAMIN\FLUORIDE ION\FOLIC ACID\NIACIN\PYRIDOXINE\RIBOFLAVIN\THIAMINE\VITAMIN A\VITAMIN D
  12. VITAMIN B1 [Concomitant]
     Active Substance: THIAMINE HYDROCHLORIDE

REACTIONS (2)
  - Seizure [None]
  - Unresponsive to stimuli [None]

NARRATIVE: CASE EVENT DATE: 20170216
